FAERS Safety Report 10843855 (Version 1)
Quarter: 2015Q1

REPORT INFORMATION
  Report Type: Report from Study
  Country: US (occurrence: US)
  Receive Date: 20150220
  Receipt Date: 20150220
  Transmission Date: 20150721
  Serious: No
  Sender: FDA-Public Use
  Company Number: US-ABBVIE-14P-163-1274090-00

PATIENT
  Sex: Male

DRUGS (2)
  1. HUMIRA [Suspect]
     Active Substance: ADALIMUMAB
     Indication: COLITIS ULCERATIVE
     Dates: start: 201202
  2. LIALDA [Concomitant]
     Active Substance: MESALAMINE
     Indication: COLITIS ULCERATIVE

REACTIONS (10)
  - Acne [Unknown]
  - Eye pain [Unknown]
  - Fatigue [Unknown]
  - Hypotonia [Not Recovered/Not Resolved]
  - Weight decreased [Unknown]
  - Ocular hyperaemia [Unknown]
  - Dry skin [Unknown]
  - Eye swelling [Unknown]
  - Ocular discomfort [Unknown]
  - Vision blurred [Unknown]
